FAERS Safety Report 6608911-3 (Version None)
Quarter: 2010Q1

REPORT INFORMATION
  Report Type: 
  Country: None (occurrence: None)
  Receive Date: 20100301
  Receipt Date: 20100219
  Transmission Date: 20100710
  Serious: Yes (Hospitalization)
  Sender: FDA-Public Use
  Company Number: FR-PFIZER INC-2010021863

PATIENT
  Age: 71 Year
  Sex: Male

DRUGS (10)
  1. TAHOR [Suspect]
     Dosage: UNK
     Route: 048
     Dates: end: 20100125
  2. TRIATEC [Suspect]
     Dosage: 2.5 MG, UNK
     Route: 048
     Dates: end: 20100125
  3. LASIX [Suspect]
     Dosage: UNK
     Route: 048
     Dates: end: 20100125
  4. VISIPAQUE [Suspect]
     Indication: ABDOMINAL PAIN
     Dosage: UNK
     Route: 051
     Dates: start: 20100119
  5. GLUCOPHAGE [Suspect]
     Dosage: 850 MG, 2X/DAY
     Route: 048
     Dates: end: 20100125
  6. ISOPTIN [Concomitant]
     Dosage: UNK
  7. PLAVIX [Concomitant]
     Dosage: UNK
  8. CARDENSIEL [Concomitant]
     Dosage: UNK
  9. PREVISCAN [Concomitant]
     Dosage: UNK
  10. EXELON [Concomitant]
     Dosage: UNK

REACTIONS (2)
  - HYPERKALAEMIA [None]
  - RENAL FAILURE ACUTE [None]
